FAERS Safety Report 9016931 (Version 2)
Quarter: 2013Q3

REPORT INFORMATION
  Report Type: Report from Study
  Country: DE (occurrence: DE)
  Receive Date: 20130117
  Receipt Date: 20130814
  Transmission Date: 20140515
  Serious: No
  Sender: FDA-Public Use
  Company Number: PHHY2013DE003395

PATIENT
  Sex: Female

DRUGS (5)
  1. FTY 720 [Suspect]
     Indication: MULTIPLE SCLEROSIS
     Dosage: 0.5 MG, QD
     Route: 048
     Dates: start: 20120702
  2. GABAPENTIN [Concomitant]
     Indication: MYALGIA
     Dosage: 3 DF, QD
     Route: 048
     Dates: start: 20050913
  3. BACLOFEN [Concomitant]
     Indication: MUSCLE SPASMS
     Dosage: 3 DF, QD
     Route: 048
     Dates: start: 20070611
  4. CIPRALEX                                /DEN/ [Concomitant]
     Indication: DEPRESSION
     Dosage: 10 MG, QD
     Route: 048
     Dates: start: 20060129
  5. THYRONAJOD [Concomitant]
     Indication: HYPOTHYROIDISM
     Dosage: 50 MG, QD
     Route: 048
     Dates: start: 20110701

REACTIONS (1)
  - Open angle glaucoma [Not Recovered/Not Resolved]
